FAERS Safety Report 18523692 (Version 1)
Quarter: 2020Q4

REPORT INFORMATION
  Report Type: Report from Study
  Country: US (occurrence: US)
  Receive Date: 20201119
  Receipt Date: 20201119
  Transmission Date: 20210114
  Serious: Yes (Other)
  Sender: FDA-Public Use
  Company Number: US-FERAPHARMA-2020-US-023496

PATIENT
  Age: 74 Year
  Sex: Male
  Weight: 86.5 kg

DRUGS (1)
  1. DEXAMETHASONE (NON-SPECIFIC) [Suspect]
     Active Substance: DEXAMETHASONE
     Indication: PLASMA CELL MYELOMA
     Dosage: 20 MILLIGRAMS, DAYS 8 AND 22
     Route: 048
     Dates: start: 20200203, end: 20200629

REACTIONS (7)
  - COVID-19 [Recovered/Resolved]
  - Mental status changes [Recovered/Resolved]
  - Encephalopathy [Unknown]
  - Confusional state [Recovered/Resolved]
  - Hypoxia [Recovered/Resolved]
  - Insomnia [Recovered/Resolved]
  - Dyspnoea [Unknown]

NARRATIVE: CASE EVENT DATE: 20200710
